FAERS Safety Report 19304443 (Version 21)
Quarter: 2022Q3

REPORT INFORMATION
  Report Type: Report from Study
  Country: CN (occurrence: None)
  Receive Date: 20210525
  Receipt Date: 20220803
  Transmission Date: 20221026
  Serious: Yes (Life-Threatening)
  Sender: FDA-Public Use
  Company Number: CN-ROCHE-2834698

PATIENT
  Age: 53 Year
  Sex: Female
  Weight: 44 kg

DRUGS (34)
  1. PLACEBO [Suspect]
     Active Substance: UNSPECIFIED INGREDIENT
     Indication: Non-small cell lung cancer stage IV
     Dosage: DATE OF MOST RECENT DOSE OF STUDY DRUG PRIOR TO ADVERSE EVENT  29-APR-2021
     Route: 041
     Dates: start: 20210407
  2. BEVACIZUMAB [Suspect]
     Active Substance: BEVACIZUMAB
     Indication: Non-small cell lung cancer stage IV
     Dosage: DATE OF MOST RECENT DOSE OF STUDY DRUG PRIOR TO ADVERSE EVENT 29-APR-2021 694 MG
     Route: 042
     Dates: start: 20210407
  3. CARBOPLATIN [Suspect]
     Active Substance: CARBOPLATIN
     Indication: Non-small cell lung cancer stage IV
     Dosage: DATE OF MOST RECENT DOSE OF STUDY DRUG PRIOR TO ADVERSE EVENT 29-APR-2021 649 MG
     Route: 042
     Dates: start: 20210407
  4. PEMETREXED [Suspect]
     Active Substance: PEMETREXED
     Indication: Non-small cell lung cancer stage IV
     Dosage: DATE OF MOST RECENT DOSE OF STUDY DRUG PRIOR TO ADVERSE EVENT 29-APR-2021 645 MG
     Route: 042
     Dates: start: 20210407
  5. MIDAZOLAM [Concomitant]
     Active Substance: MIDAZOLAM
     Indication: Sedation
     Dates: start: 202105, end: 202105
  6. SUFENTANIL CITRATE [Concomitant]
     Active Substance: SUFENTANIL CITRATE
     Indication: Anaesthesia
     Dates: start: 202105, end: 202105
  7. SUFENTANIL CITRATE [Concomitant]
     Active Substance: SUFENTANIL CITRATE
     Indication: Endotracheal intubation
  8. PROPOFOL [Concomitant]
     Active Substance: PROPOFOL
     Indication: Sedation
     Dates: start: 20210520, end: 20210522
  9. PROPOFOL [Concomitant]
     Active Substance: PROPOFOL
     Dates: start: 202105, end: 202105
  10. AMIKACIN SULFATE [Concomitant]
     Active Substance: AMIKACIN SULFATE
     Indication: Infection
     Dates: start: 202105, end: 202105
  11. AMINOPHYLLINE [Concomitant]
     Active Substance: AMINOPHYLLINE
     Indication: Asthma
     Dates: start: 202105
  12. MOXIFLOXACIN HYDROCHLORIDE [Concomitant]
     Active Substance: MOXIFLOXACIN HYDROCHLORIDE
     Indication: Infection
     Dates: start: 20210528, end: 20210612
  13. FOLIC ACID [Concomitant]
     Active Substance: FOLIC ACID
     Dates: start: 20210317, end: 20210519
  14. LACTULOSE [Concomitant]
     Active Substance: LACTULOSE
     Route: 048
     Dates: start: 20210404
  15. LACTULOSE [Concomitant]
     Active Substance: LACTULOSE
     Route: 048
     Dates: start: 20210428, end: 20210505
  16. GRANULOCYTE COLONY-STIMULATING FACTOR NOS [Concomitant]
     Active Substance: GRANULOCYTE COLONY-STIMULATING FACTOR NOS
     Dates: start: 20210421, end: 20210421
  17. DEXAMETHASONE [Concomitant]
     Active Substance: DEXAMETHASONE
     Route: 048
     Dates: start: 20210428, end: 20210428
  18. DEXAMETHASONE SODIUM PHOSPHATE [Concomitant]
     Active Substance: DEXAMETHASONE SODIUM PHOSPHATE
     Route: 042
     Dates: start: 20210429, end: 20210430
  19. OMEPRAZOLE SODIUM [Concomitant]
     Active Substance: OMEPRAZOLE SODIUM
     Dosage: NEXT DOSE RECEIVED ON 29/APR/2021
     Dates: start: 20210428, end: 20210428
  20. DOLASETRON MESYLATE [Concomitant]
     Active Substance: DOLASETRON MESYLATE
     Dates: start: 20210429, end: 20210429
  21. PHOSPHOLIPID [Concomitant]
     Active Substance: PHOSPHOLIPID
     Dates: start: 20210429, end: 20210430
  22. EGG PHOSPHOLIPIDS\GLYCERIN\SOYBEAN OIL [Concomitant]
     Active Substance: EGG PHOSPHOLIPIDS\GLYCERIN\SOYBEAN OIL
     Indication: Nutritional supplementation
     Dates: start: 20210522, end: 20210522
  23. ERTAPENEM [Concomitant]
     Active Substance: ERTAPENEM
     Dates: start: 20210522, end: 20210522
  24. DEXTROSE\SODIUM CHLORIDE [Concomitant]
     Active Substance: DEXTROSE\SODIUM CHLORIDE
     Dates: start: 20210520, end: 20210521
  25. RACEANISODAMINE HYDROCHLORIDE [Concomitant]
     Dates: start: 20210523, end: 20210523
  26. AMINOPHYLLINE [Concomitant]
     Active Substance: AMINOPHYLLINE
     Indication: Asthma
     Dates: start: 202105, end: 202105
  27. INSULIN NOS [Concomitant]
     Active Substance: INSULIN NOS
     Dosage: SUBSEQUENT DOSE ON 07/APR/2022
     Dates: start: 20210429, end: 20210430
  28. MORPHINE HYDROCHLORIDE [Concomitant]
     Active Substance: MORPHINE HYDROCHLORIDE
     Dates: start: 20210428, end: 20210428
  29. OMEPRAZOLE SODIUM [Concomitant]
     Active Substance: OMEPRAZOLE SODIUM
     Dates: start: 20210429, end: 20210429
  30. POTASSIUM CHLORIDE [Concomitant]
     Active Substance: POTASSIUM CHLORIDE
     Dosage: SUBSEQUENT DOSE ON 22/MAY/2022
     Dates: start: 20210429, end: 20210430
  31. POTASSIUM CHLORIDE [Concomitant]
     Active Substance: POTASSIUM CHLORIDE
     Dates: start: 20210522, end: 20210522
  32. AMINOPHYLLINE [Concomitant]
     Active Substance: AMINOPHYLLINE
     Dates: start: 20210520, end: 20210520
  33. OXYCODONE HYDROCHLORIDE [Concomitant]
     Active Substance: OXYCODONE HYDROCHLORIDE
     Dates: start: 20210428, end: 20210519
  34. PREGABALIN [Concomitant]
     Active Substance: PREGABALIN
     Dates: start: 20210429, end: 20210503

REACTIONS (2)
  - Pneumonia [Not Recovered/Not Resolved]
  - Bronchostenosis [Not Recovered/Not Resolved]

NARRATIVE: CASE EVENT DATE: 20210519
